FAERS Safety Report 5963524-1 (Version None)
Quarter: 2008Q4

REPORT INFORMATION
  Report Type: 
  Country: None (occurrence: None)
  Receive Date: 20081120
  Receipt Date: 20081113
  Transmission Date: 20090506
  Serious: No
  Sender: FDA-Public Use
  Company Number: C-08-0076-W

PATIENT
  Age: 61 Year
  Sex: Female
  Weight: 81.6475 kg

DRUGS (2)
  1. TERBINAFINE HCL [Suspect]
     Indication: ONYCHOMYCOSIS
     Dosage: 1 TABLET/ONCE A DAY/ORAL
     Route: 048
     Dates: start: 20080725, end: 20080823
  2. NEXIUM AND LISINOPRIL [Concomitant]

REACTIONS (4)
  - AGEUSIA [None]
  - DYSGEUSIA [None]
  - MOUTH ULCERATION [None]
  - NERVE INJURY [None]
